FAERS Safety Report 8402464-5 (Version None)
Quarter: 2012Q2

REPORT INFORMATION
  Report Type: 
  Country: None (occurrence: None)
  Receive Date: 20120601
  Receipt Date: 20120518
  Transmission Date: 20120825
  Serious: Yes (Other)
  Sender: FDA-Public Use
  Company Number: GB-AMGEN-GBRCT2012032945

PATIENT
  Age: 52 Year
  Sex: Female

DRUGS (4)
  1. ETANERCEPT [Suspect]
     Indication: PRODUCT USED FOR UNKNOWN INDICATION
     Dosage: UNK
  2. TOLTERODINE TARTRATE [Concomitant]
     Dosage: UNK
     Dates: start: 20090101
  3. PROZAC [Concomitant]
     Dosage: UNK
     Dates: start: 20030101
  4. METHOTREXATE [Concomitant]
     Dosage: UNK
     Dates: start: 20100120

REACTIONS (1)
  - BREAST CANCER [None]
